FAERS Safety Report 4486679-7 (Version None)
Quarter: 2004Q4

REPORT INFORMATION
  Report Type: 
  Country: None (occurrence: None)
  Receive Date: 20041021
  Receipt Date: 20041005
  Transmission Date: 20050328
  Serious: Yes (Hospitalization)
  Sender: FDA-Public Use
  Company Number: DSA_25164_2004

PATIENT
  Age: 32 Year
  Sex: Male

DRUGS (1)
  1. TAVOR [Suspect]
     Dates: start: 20040930, end: 20040930

REACTIONS (5)
  - HYPOGLYCAEMIA [None]
  - HYPOTENSION [None]
  - INTENTIONAL OVERDOSE [None]
  - PUNCTURE SITE REACTION [None]
  - SOMNOLENCE [None]
